FAERS Safety Report 8374557-2 (Version None)
Quarter: 2012Q2

REPORT INFORMATION
  Report Type: 
  Country: None (occurrence: None)
  Receive Date: 20120521
  Receipt Date: 20120508
  Transmission Date: 20120825
  Serious: Yes (Other)
  Sender: FDA-Public Use
  Company Number: CA-JNJFOC-20120508778

PATIENT
  Sex: Female
  Weight: 99.8 kg

DRUGS (4)
  1. TYLENOL [Concomitant]
     Indication: ARTHRITIS
     Route: 065
  2. ANTIBIOTICS [Concomitant]
     Route: 066
  3. METHOTREXATE [Suspect]
     Indication: ARTHRALGIA
     Route: 065
  4. REMICADE [Suspect]
     Indication: COLITIS ULCERATIVE
     Route: 042
     Dates: start: 20071221

REACTIONS (2)
  - CELLULITIS [None]
  - ARTHRITIS [None]
